FAERS Safety Report 26217213 (Version 1)
Quarter: 2025Q4

REPORT INFORMATION
  Report Type: Report from Study
  Country: EU (occurrence: EU)
  Receive Date: 20251231
  Receipt Date: 20251231
  Transmission Date: 20260117
  Serious: Yes (Death)
  Sender: ABBVIE
  Company Number: EU-ABBVIE-6610570

PATIENT
  Sex: Male

DRUGS (1)
  1. FOSCARBIDOPA\FOSLEVODOPA [Suspect]
     Active Substance: FOSCARBIDOPA\FOSLEVODOPA
     Indication: Parkinson^s disease
     Dosage: CRL: 0,4ML/H, CRB: 0,43ML/H (24H), CRH: 0,6ML/H ED: 0,3ML, LD: 1ML
     Route: 058
     Dates: start: 20240909, end: 20251218

REACTIONS (1)
  - Condition aggravated [Fatal]
